FAERS Safety Report 7313206-9 (Version None)
Quarter: 2011Q1

REPORT INFORMATION
  Report Type: 
  Country: None (occurrence: None)
  Receive Date: 20110225
  Receipt Date: 20110214
  Transmission Date: 20110831
  Serious: Yes (Other)
  Sender: FDA-Public Use
  Company Number: US-ELI_LILLY_AND_COMPANY-US201102004629

PATIENT
  Age: 57 Year
  Sex: Female

DRUGS (2)
  1. PREDNISONE [Concomitant]
     Dosage: 5 MG, DAILY (1/D)
     Route: 065
  2. FORTEO [Suspect]
     Dosage: UNK, UNKNOWN
     Route: 065

REACTIONS (8)
  - HEART RATE INCREASED [None]
  - TREMOR [None]
  - PYREXIA [None]
  - DYSPNOEA [None]
  - PRESYNCOPE [None]
  - BRONCHIAL SECRETION RETENTION [None]
  - HYPERHIDROSIS [None]
  - SYSTEMIC LUPUS ERYTHEMATOSUS [None]
